FAERS Safety Report 4896532-2 (Version None)
Quarter: 2006Q1

REPORT INFORMATION
  Report Type: 
  Country: None (occurrence: None)
  Receive Date: 20060131
  Receipt Date: 20060124
  Transmission Date: 20060701
  Serious: Yes (Other)
  Sender: FDA-Public Use
  Company Number: JP-JPN-A200600307

PATIENT
  Age: 28 Year
  Sex: Female

DRUGS (9)
  1. PAXIL [Suspect]
     Indication: DEPRESSION
     Dosage: 10MG PER DAY
     Route: 048
     Dates: start: 20050921, end: 20050927
  2. PAXIL [Suspect]
     Dosage: 20MG PER DAY
     Route: 048
     Dates: start: 20050928, end: 20051101
  3. PAXIL [Suspect]
     Dosage: 30MG PER DAY
     Route: 048
     Dates: start: 20051102, end: 20051123
  4. PAXIL [Suspect]
     Dosage: 20MG PER DAY
     Route: 048
     Dates: start: 20051124, end: 20051129
  5. PAXIL [Suspect]
     Dosage: 10MG PER DAY
     Route: 048
     Dates: start: 20051130, end: 20051207
  6. TECIPUL [Concomitant]
     Route: 048
  7. NINJIN-TO [Concomitant]
     Indication: HYPEREMESIS GRAVIDARUM
     Dosage: 7.5G PER DAY
     Route: 048
     Dates: start: 20051201, end: 20051221
  8. DEPAS [Concomitant]
     Route: 048
  9. NAUZELIN [Concomitant]
     Indication: HYPEREMESIS GRAVIDARUM
     Route: 054
     Dates: start: 20051130, end: 20051130

REACTIONS (2)
  - ABORTION [None]
  - DRUG EXPOSURE DURING PREGNANCY [None]
